FAERS Safety Report 20658466 (Version 1)
Quarter: 2022Q1

REPORT INFORMATION
  Report Type: Spontaneous
  Country: FR (occurrence: FR)
  Receive Date: 20220331
  Receipt Date: 20220331
  Transmission Date: 20220423
  Serious: Yes (Hospitalization, Other)
  Sender: FDA-Public Use
  Company Number: None

PATIENT
  Age: 47 Year
  Sex: Female
  Weight: 93 kg

DRUGS (17)
  1. SOTROVIMAB [Suspect]
     Active Substance: SOTROVIMAB
     Indication: COVID-19
     Dosage: 500 MG
     Route: 041
     Dates: start: 20220215, end: 20220215
  2. TEGRETOL [Suspect]
     Active Substance: CARBAMAZEPINE
     Indication: Headache
     Dosage: 1 DF(1 MIDDAY TABLET)
     Route: 048
     Dates: start: 20220214, end: 20220215
  3. TEGRETOL [Suspect]
     Active Substance: CARBAMAZEPINE
     Dosage: 2 DF(1 TABLET MORNING AND EVENING)
     Route: 048
     Dates: start: 20220215, end: 20220216
  4. TEGRETOL [Suspect]
     Active Substance: CARBAMAZEPINE
     Dosage: 3 DF(1 TABLET MORNING, NOON AND EVENING)
     Route: 048
     Dates: start: 20220224, end: 20220228
  5. TEGRETOL [Suspect]
     Active Substance: CARBAMAZEPINE
     Dosage: 4 DF(2 TABLETS MORNING AND EVENING)
     Route: 048
     Dates: start: 20220216, end: 20220221
  6. TEGRETOL [Suspect]
     Active Substance: CARBAMAZEPINE
     Dosage: 5 DF (2 TABLETS MORNING, 1 TABLET MIDDAY AND 2 TABLETS EVENING)
     Route: 048
     Dates: start: 20220221, end: 20220222
  7. TEGRETOL [Suspect]
     Active Substance: CARBAMAZEPINE
     Dosage: 5 DF(2 TABLETS AT MIDNIGHT, 2 TABLETS AT 8 A.M. AND 1 TABLET AT 4 P.M)
     Route: 048
     Dates: start: 20220222, end: 20220224
  8. LIORESAL [Suspect]
     Active Substance: BACLOFEN
     Indication: Muscle spasticity
     Dosage: 3 DF, 1 TABLET MORNING, NOON AND EVENING
     Route: 048
     Dates: start: 20220215, end: 20220228
  9. PROZAC [Interacting]
     Active Substance: FLUOXETINE HYDROCHLORIDE
     Indication: Antidepressant therapy
     Dosage: 20 MG
     Route: 048
  10. LOVENOX [Concomitant]
     Active Substance: ENOXAPARIN SODIUM
     Indication: Thrombosis prophylaxis
     Dosage: 1 DF
     Route: 058
     Dates: start: 20220214
  11. AMITRIPTYLINE HYDROCHLORIDE [Concomitant]
     Active Substance: AMITRIPTYLINE HYDROCHLORIDE
     Indication: Headache
     Dosage: 20 MG (5 DROPS MORNING AND NOON, 10 DROPS EVENING)
     Route: 048
     Dates: start: 20220219, end: 20220224
  12. AMITRIPTYLINE HYDROCHLORIDE [Concomitant]
     Active Substance: AMITRIPTYLINE HYDROCHLORIDE
     Dosage: 25 MG (5 DROPS MORNING AND NOON, 15 DROPS AT BEDTIME)
     Route: 048
     Dates: start: 20220224, end: 20220228
  13. AMITRIPTYLINE HYDROCHLORIDE [Concomitant]
     Active Substance: AMITRIPTYLINE HYDROCHLORIDE
     Dosage: 15 MG (5 DROPS MORNING, NOON AND EVENING)
     Route: 048
     Dates: start: 20220218, end: 20220219
  14. CEFTRIAXONE SODIUM [Concomitant]
     Active Substance: CEFTRIAXONE SODIUM
     Indication: Infection
     Dosage: 1 G
     Route: 042
     Dates: start: 20220214, end: 20220302
  15. NICOTINE [Concomitant]
     Active Substance: NICOTINE
     Indication: Nicotine dependence
     Dosage: 1 DF
     Route: 065
     Dates: start: 20220214
  16. DALFAMPRIDINE [Concomitant]
     Active Substance: DALFAMPRIDINE
     Indication: Product used for unknown indication
     Dosage: 20 MG (10 MG MORNING AND EVENIN)
     Route: 048
  17. AMITRIPTYLINE HYDROCHLORIDE [Concomitant]
     Active Substance: AMITRIPTYLINE HYDROCHLORIDE
     Indication: Headache
     Dosage: 25 MG (25MG AT BEDTIME)
     Route: 048
     Dates: start: 20220303

REACTIONS (2)
  - Cholestasis [Recovering/Resolving]
  - Hepatic cytolysis [Recovering/Resolving]

NARRATIVE: CASE EVENT DATE: 20220215
